FAERS Safety Report 25271750 (Version 1)
Quarter: 2025Q2

REPORT INFORMATION
  Report Type: Spontaneous
  Country: CH (occurrence: CH)
  Receive Date: 20250506
  Receipt Date: 20250506
  Transmission Date: 20250717
  Serious: Yes (Life-Threatening, Hospitalization, Other)
  Sender: ORGANON
  Company Number: None

PATIENT
  Age: 22 Year
  Sex: Female
  Weight: 63.8 kg

DRUGS (10)
  1. REMERON [Suspect]
     Active Substance: MIRTAZAPINE
     Dosage: 15 MILLIGRAM, QD
     Route: 048
     Dates: end: 202502
  2. LORAZEPAM [Suspect]
     Active Substance: LORAZEPAM
     Dosage: MAX. 2X/DAY (AS NECESSARY)
     Route: 048
     Dates: end: 202502
  3. LORAZEPAM [Suspect]
     Active Substance: LORAZEPAM
     Route: 048
     Dates: start: 20250301, end: 20250301
  4. LORAZEPAM [Suspect]
     Active Substance: LORAZEPAM
     Route: 048
     Dates: start: 20250302, end: 20250302
  5. HALDOL [Suspect]
     Active Substance: HALOPERIDOL
     Dosage: MAX. 6X/DAY
     Route: 048
     Dates: end: 202502
  6. ESCITALOPRAM [Suspect]
     Active Substance: ESCITALOPRAM OXALATE
     Route: 048
  7. RISPERDAL [Suspect]
     Active Substance: RISPERIDONE
     Route: 048
  8. CHLORPROTHIXENE [Suspect]
     Active Substance: CHLORPROTHIXENE
     Dosage: MAX. 3X/DAY
     Dates: end: 202502
  9. REXULTI [Suspect]
     Active Substance: BREXPIPRAZOLE
     Dosage: 2 MILLIGRAM, QD
     Route: 048
     Dates: end: 202502
  10. AKINETON [Suspect]
     Active Substance: BIPERIDEN HYDROCHLORIDE
     Dosage: MAX. 2X/DAY
     Route: 048
     Dates: end: 202502

REACTIONS (3)
  - Toxicity to various agents [Recovering/Resolving]
  - Transaminases increased [Recovering/Resolving]
  - Renal impairment [Recovered/Resolved]

NARRATIVE: CASE EVENT DATE: 20250226
